FAERS Safety Report 4434473-5 (Version None)
Quarter: 2004Q3

REPORT INFORMATION
  Report Type: 
  Country: None (occurrence: None)
  Receive Date: 20040726
  Receipt Date: 20040305
  Transmission Date: 20050211
  Serious: No
  Sender: FDA-Public Use
  Company Number: USA040361189

PATIENT
  Age: 79 Year
  Sex: Female
  Weight: 59 kg

DRUGS (6)
  1. FORTEO [Suspect]
     Indication: OSTEOPOROSIS
     Dates: start: 20030301
  2. ASPIRIN [Concomitant]
  3. NORVASC [Concomitant]
  4. LESCOL [Concomitant]
  5. ISOSORBIDE MONONITRATE [Concomitant]
  6. APO-METOPROLOL (METOPROLOL TARTRATE) [Concomitant]

REACTIONS (1)
  - INJECTION SITE HAEMORRHAGE [None]
